FAERS Safety Report 7119729-X (Version None)
Quarter: 2010Q4

REPORT INFORMATION
  Report Type: 
  Country: None (occurrence: None)
  Receive Date: 20101123
  Receipt Date: 20100622
  Transmission Date: 20110411
  Serious: No
  Sender: FDA-Public Use
  Company Number: US-BRISTOL-MYERS SQUIBB COMPANY-15078355

PATIENT
  Age: 84 Year
  Sex: Male
  Weight: 113 kg

DRUGS (3)
  1. ONGLYZA [Suspect]
     Indication: TYPE 2 DIABETES MELLITUS
     Dates: start: 20100101
  2. FLECAINIDE [Concomitant]
  3. GLIMEPIRIDE [Concomitant]

REACTIONS (1)
  - DRUG INEFFECTIVE [None]
